FAERS Safety Report 6081517-3 (Version None)
Quarter: 2009Q1

REPORT INFORMATION
  Report Type: 
  Country: None (occurrence: None)
  Receive Date: 20090213
  Receipt Date: 20090203
  Transmission Date: 20090719
  Serious: Yes (Other)
  Sender: FDA-Public Use
  Company Number: 2009AP000436

PATIENT
  Age: 83 Year
  Sex: Male

DRUGS (6)
  1. ZOLPIDEM TARTRATE [Suspect]
     Indication: SLEEP DISORDER
     Dosage: 5 MG; PRN; PO
     Route: 048
     Dates: end: 20081212
  2. WARFARIN [Concomitant]
  3. TAMSULOSIN HCL [Concomitant]
  4. HYDROCHLORIDE [Concomitant]
  5. ALENDRONATE SODIUM [Concomitant]
  6. ZOLPIDEM TARTRATE [Concomitant]

REACTIONS (1)
  - ATRIAL FIBRILLATION [None]
